FAERS Safety Report 4822459-8 (Version None)
Quarter: 2005Q4

REPORT INFORMATION
  Report Type: 
  Country: None (occurrence: None)
  Receive Date: 20051103
  Receipt Date: 20051103
  Transmission Date: 20060501
  Serious: Yes (Life-Threatening)
  Sender: FDA-Public Use
  Company Number: None

PATIENT
  Age: 60 Year
  Sex: Female
  Weight: 92.9874 kg

DRUGS (6)
  1. ROPIVACAINE 0.2% EPIDURAL [Suspect]
     Indication: PAIN MANAGEMENT
     Dosage: 7MK/HR BASAL RATE; 5ML WITH 30 MINUTE DELAY
     Route: 008
     Dates: start: 20050914
  2. MORPHINE [Concomitant]
  3. CEFEPIME [Concomitant]
  4. AMBIEN [Concomitant]
  5. ACTOS [Concomitant]
  6. ZOCOR [Concomitant]

REACTIONS (4)
  - HYPERCAPNIA [None]
  - HYPOTENSION [None]
  - INFUSION RELATED REACTION [None]
  - RESPIRATORY ARREST [None]
